FAERS Safety Report 5115923-8 (Version None)
Quarter: 2006Q3

REPORT INFORMATION
  Report Type: 
  Country: None (occurrence: None)
  Receive Date: 20060927
  Receipt Date: 20050921
  Transmission Date: 20061208
  Serious: No
  Sender: FDA-Public Use
  Company Number: US-BRISTOL-MYERS SQUIBB COMPANY-13118930

PATIENT
  Age: 43 Year
  Sex: Male
  Weight: 125 kg

DRUGS (1)
  1. DEFINITY [Suspect]
     Route: 040
     Dates: start: 20050921

REACTIONS (1)
  - MUSCLE SPASMS [None]
